APPROVED DRUG PRODUCT: DOXYCYCLINE HYCLATE
Active Ingredient: DOXYCYCLINE HYCLATE
Strength: EQ 20MG BASE
Dosage Form/Route: TABLET;ORAL
Application: A065277 | Product #001 | TE Code: AB
Applicant: CHARTWELL MOLECULAR HOLDINGS LLC
Approved: Nov 10, 2005 | RLD: No | RS: Yes | Type: RX